FAERS Safety Report 4369023-5 (Version None)
Quarter: 2004Q2

REPORT INFORMATION
  Report Type: 
  Country: None (occurrence: None)
  Receive Date: 20040602
  Receipt Date: 20040602
  Transmission Date: 20050107
  Serious: Yes (Hospitalization)
  Sender: FDA-Public Use
  Company Number: None

PATIENT
  Age: 50 Year
  Sex: Male
  Weight: 61.2356 kg

DRUGS (2)
  1. TAXOL [Suspect]
     Indication: THROAT CANCER
     Dosage: 113 MG IV Q 21 D
     Route: 042
     Dates: start: 20040510
  2. TAXOL [Suspect]
     Indication: THROAT CANCER
     Dosage: 113 MG IV Q 21 D
     Route: 042
     Dates: start: 20040601

REACTIONS (3)
  - HYPERHIDROSIS [None]
  - HYPOTENSION [None]
  - OXYGEN SATURATION DECREASED [None]
